FAERS Safety Report 5067681-3 (Version None)
Quarter: 2006Q3

REPORT INFORMATION
  Report Type: 
  Country: None (occurrence: None)
  Receive Date: 20060728
  Receipt Date: 20060712
  Transmission Date: 20061208
  Serious: Yes (Hospitalization, Other)
  Sender: FDA-Public Use
  Company Number: US200607002179

PATIENT
  Age: 68 Year
  Sex: Female

DRUGS (2)
  1. FORTEO [Suspect]
     Indication: OSTEOPOROSIS
     Dates: start: 20060501
  2. FORTEO [Concomitant]

REACTIONS (5)
  - FALL [None]
  - FIBULA FRACTURE [None]
  - JOINT SPRAIN [None]
  - PHARMACEUTICAL PRODUCT COMPLAINT [None]
  - TIBIA FRACTURE [None]
